FAERS Safety Report 9387406 (Version 1)
Quarter: 2013Q3

REPORT INFORMATION
  Report Type: Spontaneous
  Country: US (occurrence: None)
  Receive Date: 20130702
  Receipt Date: 20130702
  Transmission Date: 20140515
  Serious: Yes (Disabling)
  Sender: FDA-Public Use
  Company Number: PI-09640

PATIENT
  Sex: Female

DRUGS (2)
  1. CHLORAPREP (2%CHG/70%IPA) [Suspect]
     Indication: PREOPERATIVE CARE
     Dosage: SINGLE APPLICATION?
     Route: 061
  2. SPINAL -EPIDURAL ANALGESIA [Concomitant]

REACTIONS (2)
  - Meningitis [None]
  - Incontinence [None]
